FAERS Safety Report 8233274-X (Version None)
Quarter: 2012Q1

REPORT INFORMATION
  Report Type: 
  Country: None (occurrence: None)
  Receive Date: 20120326
  Receipt Date: 20120321
  Transmission Date: 20120608
  Serious: Yes (Death)
  Sender: FDA-Public Use
  Company Number: US-BAYER-2012-028385

PATIENT
  Age: 52 Year
  Sex: Female

DRUGS (1)
  1. NEXAVAR [Suspect]
     Indication: SOFT TISSUE NEOPLASM
     Dosage: UNK
     Route: 048
     Dates: start: 20110701, end: 20120110

REACTIONS (1)
  - DEATH [None]
